FAERS Safety Report 8536568-3 (Version None)
Quarter: 2012Q3

REPORT INFORMATION
  Report Type: 
  Country: None (occurrence: None)
  Receive Date: 20120725
  Receipt Date: 20120713
  Transmission Date: 20120928
  Serious: Yes (Other)
  Sender: FDA-Public Use
  Company Number: JP-FRI-1000036829

PATIENT
  Sex: Male

DRUGS (6)
  1. PROMAZINE HYDROCHLORIDE [Suspect]
     Indication: SCHIZOPHRENIA
     Dosage: 50 MG
     Route: 048
     Dates: start: 20120604, end: 20120610
  2. MEMANTINE HCL [Suspect]
     Indication: DEMENTIA ALZHEIMER'S TYPE
     Dosage: 5 MG
     Route: 048
     Dates: start: 20120611, end: 20120618
  3. LANSOPRAZOLE [Concomitant]
     Indication: PANCREATIC CARCINOMA
     Dosage: 15 MG
     Route: 048
     Dates: start: 20110514
  4. LASIX [Concomitant]
     Indication: PANCREATIC CARCINOMA
     Dosage: 20 MG
     Route: 048
     Dates: start: 20110514
  5. ALDACTONE [Concomitant]
     Indication: PANCREATIC CARCINOMA
     Dosage: 25 MG
     Route: 048
     Dates: start: 20110514
  6. WARFARIN SODIUM [Concomitant]
     Indication: ATRIAL FIBRILLATION
     Dosage: 2 MG
     Route: 048
     Dates: start: 20110514

REACTIONS (1)
  - JAUNDICE [None]
